FAERS Safety Report 9284006 (Version 6)
Quarter: 2013Q4

REPORT INFORMATION
  Report Type: Report from Study
  Country: US (occurrence: US)
  Receive Date: 20130510
  Receipt Date: 20131014
  Transmission Date: 20140711
  Serious: Yes (Hospitalization)
  Sender: FDA-Public Use
  Company Number: PHHO2013US005829

PATIENT
  Age: 49 Year
  Sex: Female
  Weight: 60.6 kg

DRUGS (2)
  1. LDK378 [Suspect]
     Indication: NON-SMALL CELL LUNG CANCER
     Dosage: 750 MG, QD
     Route: 048
     Dates: start: 20130131, end: 20130419
  2. PREDNISONE [Suspect]
     Indication: DYSPNOEA
     Dosage: 60 MG, QD
     Route: 048

REACTIONS (5)
  - Dyspnoea [Recovered/Resolved]
  - Hypoxia [Recovered/Resolved]
  - Sinus tachycardia [Recovering/Resolving]
  - Headache [Recovered/Resolved]
  - Neck pain [Recovered/Resolved]
